FAERS Safety Report 8503567-7 (Version None)
Quarter: 2012Q3

REPORT INFORMATION
  Report Type: 
  Country: None (occurrence: None)
  Receive Date: 20120711
  Receipt Date: 20120705
  Transmission Date: 20120928
  Serious: Yes (Other)
  Sender: FDA-Public Use
  Company Number: CO-PFIZER INC-2012163928

PATIENT
  Age: 63 Year
  Sex: Female

DRUGS (7)
  1. ADVAIR DISKUS 100/50 [Concomitant]
     Indication: ASTHMA
     Dosage: UNK
     Dates: start: 20070101
  2. MOBIC [Concomitant]
     Indication: OSTEOARTHRITIS
     Dosage: UNK
  3. CALCIUM [Concomitant]
     Dosage: 1000 MG, 2X/DAY
  4. VITAMIN E [Concomitant]
     Dosage: 1000 MG, 1X/DAY
  5. LYRICA [Suspect]
     Indication: SPINAL PAIN
     Dosage: 150 MG, 1X/DAY
     Route: 048
     Dates: start: 20090101
  6. OMEGA 3-6-9 [Concomitant]
     Dosage: UNK
  7. COMPLEJO B [Concomitant]
     Dosage: UNK

REACTIONS (4)
  - ARTHRALGIA [None]
  - SPINAL DISORDER [None]
  - ARTHRITIS [None]
  - FIBROMYALGIA [None]
